FAERS Safety Report 9422980 (Version 1)
Quarter: 2013Q3

REPORT INFORMATION
  Report Type: Spontaneous
  Country: US (occurrence: None)
  Receive Date: 20130711
  Receipt Date: 20130711
  Transmission Date: 20140515
  Serious: Yes (Life-Threatening)
  Sender: FDA-Public Use
  Company Number: 2013036826

PATIENT
  Age: 48 Year
  Sex: Female

DRUGS (1)
  1. PRIVIGEN [Suspect]
     Indication: IMMUNODEFICIENCY COMMON VARIABLE
     Route: 042
     Dates: start: 20130307, end: 20130308

REACTIONS (9)
  - Chest discomfort [None]
  - Confusional state [None]
  - Feeling hot [None]
  - Pyrexia [None]
  - Swelling [None]
  - Local swelling [None]
  - Rash [None]
  - Chills [None]
  - Throat tightness [None]
